FAERS Safety Report 9641183 (Version 2)
Quarter: 2013Q4

REPORT INFORMATION
  Report Type: Spontaneous
  Country: US (occurrence: US)
  Receive Date: 20131023
  Receipt Date: 20131023
  Transmission Date: 20140711
  Serious: Yes (Other)
  Sender: FDA-Public Use
  Company Number: US-GILEAD-2013-0085031

PATIENT
  Sex: Female

DRUGS (4)
  1. LETAIRIS [Suspect]
     Indication: PULMONARY ARTERIAL HYPERTENSION
     Dosage: 10 MG, QD
     Route: 048
     Dates: start: 20081125
  2. TADALAFIL [Concomitant]
  3. TREPROSTINIL SODIUM [Concomitant]
  4. COUMADIN                           /00014802/ [Concomitant]

REACTIONS (2)
  - Pulmonary arterial hypertension [Unknown]
  - Hypertension [Unknown]
